FAERS Safety Report 10094680 (Version 1)
Quarter: 2014Q2

REPORT INFORMATION
  Report Type: Spontaneous
  Country: US (occurrence: None)
  Receive Date: 20140418
  Receipt Date: 20140418
  Transmission Date: 20141212
  Serious: Yes (Disabling)
  Sender: FDA-Public Use
  Company Number: FK201401328

PATIENT
  Age: 40 Year
  Sex: Male

DRUGS (2)
  1. SENSORCAINE MPF [Suspect]
     Indication: PTERYGIUM OPERATION
     Dosage: PERIBULBAR
     Dates: start: 20140320, end: 20140320
  2. XYLOCAINE MPF [Suspect]
     Indication: PTERYGIUM OPERATION
     Dosage: PERIBULBAR
     Dates: start: 20140320, end: 20140320

REACTIONS (2)
  - Retinal artery occlusion [None]
  - Blindness [None]
